FAERS Safety Report 23554429 (Version 2)
Quarter: 2024Q2

REPORT INFORMATION
  Report Type: Other
  Country: US (occurrence: US)
  Receive Date: 20240222
  Receipt Date: 20240511
  Transmission Date: 20240715
  Serious: No
  Sender: FDA-Public Use
  Company Number: US-TRAVERE-2024TVT00159

PATIENT
  Sex: Male

DRUGS (7)
  1. FILSPARI [Suspect]
     Active Substance: SPARSENTAN
     Indication: IgA nephropathy
     Route: 048
  2. AMLODIPINE BESYLATE [Concomitant]
     Active Substance: AMLODIPINE BESYLATE
  3. FLAXSEED [Concomitant]
     Active Substance: FLAX SEED
  4. CLONIDINE HYDROCHLORIDE [Concomitant]
     Active Substance: CLONIDINE HYDROCHLORIDE
  5. KERENDIA [Concomitant]
     Active Substance: FINERENONE
  6. ALLOPURINOL [Concomitant]
     Active Substance: ALLOPURINOL
  7. VITAMIN D3 [Concomitant]
     Active Substance: CHOLECALCIFEROL

REACTIONS (3)
  - Somnolence [Unknown]
  - Peripheral swelling [Recovered/Resolved]
  - Fatigue [Unknown]
